FAERS Safety Report 4363015-8 (Version None)
Quarter: 2004Q2

REPORT INFORMATION
  Report Type: 
  Country: None (occurrence: None)
  Receive Date: 20040524
  Receipt Date: 20040513
  Transmission Date: 20050107
  Serious: Yes (Other)
  Sender: FDA-Public Use
  Company Number: US-JNJFOC-20040502742

PATIENT
  Sex: Female

DRUGS (2)
  1. DOXIL [Suspect]
     Route: 042
  2. DOXIL [Suspect]
     Indication: OVARIAN CANCER
     Route: 042

REACTIONS (1)
  - COLITIS ISCHAEMIC [None]
